FAERS Safety Report 10375244 (Version 2)
Quarter: 2015Q1

REPORT INFORMATION
  Report Type: Report from Study
  Country: US (occurrence: US)
  Receive Date: 20140811
  Receipt Date: 20150319
  Transmission Date: 20150720
  Serious: Yes (Life-Threatening, Hospitalization, Disabling, Other)
  Sender: FDA-Public Use
  Company Number: US-ALEXION PHARMACEUTICALS INC.-A201403020

PATIENT

DRUGS (1)
  1. SOLIRIS [Suspect]
     Active Substance: ECULIZUMAB
     Indication: PRODUCT USED FOR UNKNOWN INDICATION
     Route: 042

REACTIONS (5)
  - Haemoglobin decreased [Unknown]
  - Blood product transfusion dependent [Not Recovered/Not Resolved]
  - Blood potassium decreased [Unknown]
  - Chronic kidney disease [Unknown]
  - Coombs test positive [Unknown]

NARRATIVE: CASE EVENT DATE: 201407
